FAERS Safety Report 9212240 (Version 2)
Quarter: 2013Q2

REPORT INFORMATION
  Report Type: Spontaneous
  Country: US (occurrence: US)
  Receive Date: 20130404
  Receipt Date: 20130506
  Transmission Date: 20140414
  Serious: No
  Sender: FDA-Public Use
  Company Number: US-AMGEN-USASP2013016966

PATIENT
  Age: 56 Year
  Sex: Female
  Weight: 63.04 kg

DRUGS (2)
  1. ENBREL [Suspect]
     Indication: RHEUMATOID ARTHRITIS
     Dosage: 50 MG, QWK
     Route: 058
     Dates: start: 20130107
  2. CITALOPRAM [Concomitant]
     Dosage: UNK
     Route: 048

REACTIONS (3)
  - Erythema [Unknown]
  - Pruritus [Unknown]
  - Contusion [Unknown]
